FAERS Safety Report 23735826 (Version 1)
Quarter: 2024Q2

REPORT INFORMATION
  Report Type: Spontaneous
  Country: US (occurrence: None)
  Receive Date: 20240411
  Receipt Date: 20240411
  Transmission Date: 20240716
  Serious: Yes (Hospitalization)
  Sender: FDA-Public Use
  Company Number: None

PATIENT
  Sex: Female

DRUGS (11)
  1. GLATIRAMER ACETATE [Suspect]
     Active Substance: GLATIRAMER ACETATE
     Indication: Multiple sclerosis
     Dosage: OTHER QUANTITY : 1 SYRINGE (20 MG);?FREQUENCY : DAILY;?
     Route: 058
     Dates: start: 20240126
  2. ACYCLOVIR [Concomitant]
     Active Substance: ACYCLOVIR
  3. ATORVASTATIN [Concomitant]
  4. DEVICE [Concomitant]
     Active Substance: DEVICE
  5. CALCIUM [Concomitant]
     Active Substance: CALCIUM
  6. CLARITIN [Concomitant]
  7. COPAXONE [Concomitant]
     Active Substance: GLATIRAMER ACETATE
  8. CORTEF [Concomitant]
     Active Substance: HYDROCORTISONE
  9. CYCLOBENZAPRINE [Concomitant]
     Active Substance: CYCLOBENZAPRINE
  10. DIAZEPAM [Concomitant]
     Active Substance: DIAZEPAM
  11. DICYCLOMNE [Concomitant]

REACTIONS (8)
  - Abdominal pain upper [None]
  - Diarrhoea [None]
  - Adverse drug reaction [None]
  - Muscular weakness [None]
  - Abdominal pain [None]
  - Fatigue [None]
  - Decreased appetite [None]
  - Nausea [None]
